FAERS Safety Report 5049047-5 (Version None)
Quarter: 2006Q3

REPORT INFORMATION
  Report Type: 
  Country: None (occurrence: None)
  Receive Date: 20060712
  Receipt Date: 20060210
  Transmission Date: 20061208
  Serious: No
  Sender: FDA-Public Use
  Company Number: US-GLAXOSMITHKLINE-A0593261A

PATIENT
  Age: 9 Month
  Sex: Male

DRUGS (2)
  1. IMITREX [Suspect]
     Indication: MIGRAINE
     Dosage: 50MG AS REQUIRED
  2. NO CONCURRENT MEDICATION [Concomitant]

REACTIONS (5)
  - DRUG EXPOSURE VIA BREAST MILK [None]
  - ECZEMA [None]
  - PYREXIA [None]
  - RASH [None]
  - VIRAL INFECTION [None]
